FAERS Safety Report 6780098-6 (Version None)
Quarter: 2010Q2

REPORT INFORMATION
  Report Type: 
  Country: None (occurrence: None)
  Receive Date: 20100618
  Receipt Date: 20100610
  Transmission Date: 20101027
  Serious: Yes (Death)
  Sender: FDA-Public Use
  Company Number: JP-PFIZER INC-2010075058

PATIENT
  Age: 59 Year
  Sex: Female
  Weight: 46 kg

DRUGS (11)
  1. SILDENAFIL CITRATE [Suspect]
     Indication: PULMONARY HYPERTENSION
     Dosage: 20 MG, 1X/DAY
     Route: 048
     Dates: start: 20080520, end: 20080602
  2. SILDENAFIL CITRATE [Suspect]
     Dosage: 20 MG, 3X/DAY
     Route: 048
     Dates: start: 20080603, end: 20091222
  3. TRACLEER [Concomitant]
     Indication: PULMONARY HYPERTENSION
     Dosage: UNK
     Dates: start: 20071027
  4. BLOPRESS [Concomitant]
     Dosage: UNK
     Dates: start: 20071016
  5. DIART [Concomitant]
     Dosage: UNK
     Dates: start: 20071016
  6. ALLOPURINOL [Concomitant]
     Dosage: UNK
     Dates: start: 20071103
  7. SELBEX [Concomitant]
     Dosage: UNK
     Dates: start: 20071005
  8. GLYCYRON [Concomitant]
     Dosage: UNK
     Dates: start: 20080308
  9. THYRADIN [Concomitant]
     Dosage: UNK
     Dates: start: 20070919
  10. EPLERENONE [Concomitant]
     Route: 048
  11. BERAPROST SODIUM [Concomitant]
     Route: 048

REACTIONS (1)
  - DEATH [None]
